FAERS Safety Report 21843475 (Version 5)
Quarter: 2023Q2

REPORT INFORMATION
  Report Type: Report from Study
  Country: CA (occurrence: CA)
  Receive Date: 20230110
  Receipt Date: 20230407
  Transmission Date: 20230721
  Serious: Yes (Life-Threatening, Other)
  Sender: FDA-Public Use
  Company Number: CA-002147023-NVSC2022CA258292

PATIENT
  Age: 61 Year
  Sex: Female

DRUGS (1)
  1. MAYZENT [Suspect]
     Active Substance: SIPONIMOD
     Indication: Secondary progressive multiple sclerosis
     Dosage: UNK
     Route: 048
     Dates: start: 20221110, end: 20230113

REACTIONS (10)
  - Suicide attempt [Unknown]
  - Chest pain [Recovered/Resolved]
  - Vision blurred [Recovered/Resolved]
  - Migraine [Unknown]
  - Adverse drug reaction [Unknown]
  - Depressed mood [Unknown]
  - Fatigue [Unknown]
  - Headache [Unknown]
  - Heart rate decreased [Recovered/Resolved]
  - Drug ineffective [Unknown]

NARRATIVE: CASE EVENT DATE: 20221113
